FAERS Safety Report 11506911 (Version 2)
Quarter: 2015Q4

REPORT INFORMATION
  Report Type: Spontaneous
  Country: IT (occurrence: IT)
  Receive Date: 20150915
  Receipt Date: 20151009
  Transmission Date: 20160304
  Serious: Yes (Other)
  Sender: FDA-Public Use
  Company Number: IT-CELGENE-ITA-2015076073

PATIENT
  Age: 25 Year
  Sex: Female

DRUGS (8)
  1. METHOTREXATE [Concomitant]
     Active Substance: METHOTREXATE
     Route: 065
  2. THIOTEPA. [Concomitant]
     Active Substance: THIOTEPA
     Indication: SURGICAL PRECONDITIONING
     Route: 065
  3. CYCLOSPORINE. [Concomitant]
     Active Substance: CYCLOSPORINE
     Indication: PROPHYLAXIS AGAINST GRAFT VERSUS HOST DISEASE
     Route: 065
  4. METHOTREXATE [Concomitant]
     Active Substance: METHOTREXATE
     Indication: GRAFT VERSUS HOST DISEASE
     Dosage: 3 MILLIGRAM/KILOGRAM
     Route: 065
  5. FLUDARABINE [Concomitant]
     Active Substance: FLUDARABINE PHOSPHATE
     Indication: SURGICAL PRECONDITIONING
     Dosage: 3.2 MILLIGRAM/KILOGRAM
     Route: 065
  6. BUSULFAN [Concomitant]
     Active Substance: BUSULFAN
     Indication: SURGICAL PRECONDITIONING
     Dosage: 10 MILLIGRAM/KILOGRAM
     Route: 065
  7. EPOETIN BETA [Concomitant]
     Active Substance: ERYTHROPOIETIN
     Indication: CHRONIC MYELOMONOCYTIC LEUKAEMIA
     Route: 065
  8. AZACITIDINE. [Suspect]
     Active Substance: AZACITIDINE
     Indication: CHRONIC MYELOMONOCYTIC LEUKAEMIA
     Route: 058

REACTIONS (4)
  - Graft versus host disease in gastrointestinal tract [Unknown]
  - Graft versus host disease in skin [Unknown]
  - Neutropenia [Unknown]
  - Thrombocytopenia [Unknown]
